FAERS Safety Report 8302999-X (Version None)
Quarter: 2012Q2

REPORT INFORMATION
  Report Type: 
  Country: None (occurrence: None)
  Receive Date: 20120420
  Receipt Date: 20120417
  Transmission Date: 20120825
  Serious: Yes (Hospitalization)
  Sender: FDA-Public Use
  Company Number: DE-AMGEN-DEUSP2012000004

PATIENT
  Age: 76 Year
  Sex: Female
  Weight: 87 kg

DRUGS (6)
  1. SPIRIVA [Concomitant]
     Indication: ASTHMA
     Dosage: UNK UNK, QD
  2. SYMBICORT [Concomitant]
     Indication: ASTHMA
     Dosage: UNK UNK, QD
  3. MARCUMAR [Concomitant]
     Indication: DEEP VEIN THROMBOSIS
     Dosage: UNK UNK, QCYCLE
  4. PROLIA [Suspect]
     Indication: OSTEOPOROSIS POSTMENOPAUSAL
     Dosage: 60 MG, Q6MO
     Route: 058
     Dates: start: 20101119, end: 20110526
  5. MARCUMAR [Concomitant]
     Indication: PULMONARY EMBOLISM
  6. PANTOPRAZOLE [Concomitant]
     Indication: GASTRITIS
     Dosage: 40 MG, BID

REACTIONS (4)
  - TOOTH INFECTION [None]
  - MALAISE [None]
  - INTERVERTEBRAL DISCITIS [None]
  - ABDOMINAL DISCOMFORT [None]
